FAERS Safety Report 9801815 (Version 1)
Quarter: 2014Q1

REPORT INFORMATION
  Report Type: Spontaneous
  Country: US (occurrence: US)
  Receive Date: 20140107
  Receipt Date: 20140107
  Transmission Date: 20141002
  Serious: Yes (Other)
  Sender: FDA-Public Use
  Company Number: PHEH2014US000480

PATIENT
  Age: 49 Year
  Sex: Male

DRUGS (2)
  1. FANAPT [Suspect]
     Indication: SCHIZOPHRENIA, PARANOID TYPE
     Dosage: 6 MG, UNK
  2. REMERON [Suspect]
     Dosage: 15 MG, QD (15 MG AT BEDTIME)

REACTIONS (2)
  - Electrocardiogram abnormal [Recovering/Resolving]
  - Myocardial infarction [Recovering/Resolving]
